FAERS Safety Report 8858628 (Version 3)
Quarter: 2013Q1

REPORT INFORMATION
  Report Type: Spontaneous
  Country: FR (occurrence: FR)
  Receive Date: 20121024
  Receipt Date: 20130104
  Transmission Date: 20140127
  Serious: Yes (Death, Life-Threatening, Hospitalization, Other)
  Sender: FDA-Public Use
  Company Number: FR-VERTEX PHARMACEUTICAL INC.-2012-023406

PATIENT
  Age: 56 Year
  Sex: Male
  Weight: 84 kg

DRUGS (9)
  1. INCIVO [Suspect]
     Indication: PRODUCT USED FOR UNKNOWN INDICATION
     Dosage: DOSAGE FORM: TABLET
     Route: 048
     Dates: start: 20120416, end: 20120704
  2. INCIVO [Suspect]
     Indication: HEPATITIS C
  3. PEGASYS [Suspect]
     Indication: HEPATITIS C
     Dosage: 180 ?G, QW
     Route: 058
     Dates: start: 20120416, end: 20120704
  4. PEGASYS [Suspect]
     Dosage: UNK
     Route: 058
  5. COPEGUS [Suspect]
     Indication: HEPATITIS C
     Route: 048
  6. COPEGUS [Suspect]
     Dosage: 1200 MG, QD
     Route: 048
     Dates: start: 20120416, end: 20120704
  7. BUPRENORPHINE [Concomitant]
     Indication: WITHDRAWAL SYNDROME
     Route: 048
  8. DEROXAT [Concomitant]
     Indication: DEPRESSION
     Dosage: DOSAGE FORM: TABLET
     Route: 048
  9. EUPANTOL [Concomitant]
     Indication: ULCER
     Dosage: DOSAGE FORM: TABLET
     Route: 048

REACTIONS (9)
  - General physical health deterioration [Fatal]
  - Chest pain [Fatal]
  - Skin lesion [Fatal]
  - Hyperthermia [Fatal]
  - Lung disorder [Fatal]
  - Respiratory distress [Fatal]
  - Oedema peripheral [Fatal]
  - Anaemia [Fatal]
  - Thrombocytopenia [Fatal]
